FAERS Safety Report 5987983-3 (Version None)
Quarter: 2008Q4

REPORT INFORMATION
  Report Type: 
  Country: None (occurrence: None)
  Receive Date: 20081210
  Receipt Date: 20080415
  Transmission Date: 20090506
  Serious: No
  Sender: FDA-Public Use
  Company Number: US-AMGEN-KDL273543

PATIENT
  Sex: Female
  Weight: 63.6 kg

DRUGS (6)
  1. ENBREL [Suspect]
     Indication: RHEUMATOID ARTHRITIS
     Route: 058
     Dates: start: 20070917
  2. ENBREL [Suspect]
     Indication: OSTEOARTHRITIS
  3. NAPROSYN [Concomitant]
  4. LYRICA [Concomitant]
  5. CLONAZEPAM [Concomitant]
  6. PRILOSEC [Concomitant]

REACTIONS (7)
  - CHAPPED LIPS [None]
  - DRY SKIN [None]
  - ERYTHEMA [None]
  - LIP DRY [None]
  - LIP PAIN [None]
  - ORAL DISORDER [None]
  - ORAL MUCOSAL EXFOLIATION [None]
